FAERS Safety Report 8633354 (Version 2)
Quarter: 2012Q4

REPORT INFORMATION
  Report Type: 
  Country: JP (occurrence: JP)
  Receive Date: 20120625
  Receipt Date: 20120912
  Transmission Date: 20130627
  Serious: Yes (Hospitalization)
  Sender: FDA-Public Use
  Company Number: JP-BRISTOL-MYERS SQUIBB COMPANY-16690133

PATIENT
  Age: 70 Year
  Sex: Female
  Weight: 60 kg

DRUGS (6)
  1. KENACORT [Suspect]
     Indication: TRIGGER FINGER
     Dosage: Route:Intra tendon Inj
     Dates: start: 20120615, end: 20120615
  2. XYLOCAINE [Suspect]
     Indication: TRIGGER FINGER
     Dosage: Route:Intra tendon Inj
     Dates: start: 20120615, end: 20120615
  3. URSODEOXYCHOLIC ACID [Concomitant]
     Indication: HEPATITIS C
     Dosage: Tab
     Route: 048
     Dates: start: 2004
  4. ATENOLOL TABS [Concomitant]
     Indication: HYPERTENSION
     Route: 048
     Dates: start: 20080105
  5. UNISIA [Concomitant]
     Indication: HYPERTENSION
     Dosage: 1DF=8mg + 5mg
     Route: 048
     Dates: start: 20110212
  6. CRESTOR [Concomitant]
     Indication: HYPERLIPIDAEMIA
     Dosage: Tab
     Route: 048
     Dates: start: 20110115

REACTIONS (3)
  - Anaphylactic shock [Recovered/Resolved]
  - Urticaria [Recovered/Resolved]
  - Gamma-glutamyltransferase decreased [None]
